FAERS Safety Report 5306204-8 (Version None)
Quarter: 2007Q1

REPORT INFORMATION
  Report Type: 
  Country: None (occurrence: None)
  Receive Date: 20070201
  Receipt Date: 20061108
  Transmission Date: 20070707
  Serious: No
  Sender: FDA-Public Use
  Company Number: 2006PV024876

PATIENT
  Age: 37 Year
  Weight: 68.0396 kg

DRUGS (3)
  1. BYETTA [Suspect]
     Indication: DIABETES MELLITUS NON-INSULIN-DEPENDENT
     Dosage: 5 MCG;BID;SC
     Route: 058
     Dates: start: 20061001, end: 20061106
  2. AMOXICILLIN [Suspect]
     Indication: CYSTITIS
     Dosage: 500 MG;BID;PO
     Route: 048
     Dates: start: 20061106, end: 20061106
  3. METFORMIN HCL [Concomitant]

REACTIONS (3)
  - CYSTITIS [None]
  - URTICARIA GENERALISED [None]
  - WEIGHT DECREASED [None]
